FAERS Safety Report 9310812 (Version 2)
Quarter: 2013Q2

REPORT INFORMATION
  Report Type: Spontaneous
  Country: US (occurrence: US)
  Receive Date: 20130528
  Receipt Date: 20130620
  Transmission Date: 20140414
  Serious: Yes (Other)
  Sender: FDA-Public Use
  Company Number: US-AMGEN-USASP2013037148

PATIENT
  Age: 75 Year
  Sex: Female

DRUGS (1)
  1. PROLIA [Suspect]
     Indication: OSTEOPOROSIS POSTMENOPAUSAL
     Dosage: UNK UNK, Q6MO
     Route: 058
     Dates: start: 20120612

REACTIONS (6)
  - Fracture [Unknown]
  - Spinal fracture [Unknown]
  - Foot fracture [Unknown]
  - Fall [Unknown]
  - Thoracic vertebral fracture [Unknown]
  - Pain [Unknown]
